FAERS Safety Report 17221295 (Version 3)
Quarter: 2023Q4

REPORT INFORMATION
  Report Type: Spontaneous
  Country: US (occurrence: None)
  Receive Date: 20191231
  Receipt Date: 20231114
  Transmission Date: 20240110
  Serious: Yes (Other)
  Sender: FDA-Public Use
  Company Number: 2019SF88651

PATIENT
  Age: 23923 Day
  Sex: Male
  Weight: 88.5 kg

DRUGS (58)
  1. NEXIUM [Suspect]
     Active Substance: ESOMEPRAZOLE MAGNESIUM
     Indication: Gastrooesophageal reflux disease
     Route: 048
     Dates: start: 199703, end: 201701
  2. NEXIUM [Suspect]
     Active Substance: ESOMEPRAZOLE MAGNESIUM
     Indication: Dyspepsia
     Route: 048
     Dates: start: 199703, end: 201701
  3. NEXIUM [Suspect]
     Active Substance: ESOMEPRAZOLE MAGNESIUM
     Indication: Gastrooesophageal reflux disease
     Route: 048
     Dates: start: 200501, end: 2017
  4. NEXIUM [Suspect]
     Active Substance: ESOMEPRAZOLE MAGNESIUM
     Indication: Dyspepsia
     Route: 048
     Dates: start: 200501, end: 2017
  5. NEXIUM [Suspect]
     Active Substance: ESOMEPRAZOLE MAGNESIUM
     Indication: Gastrooesophageal reflux disease
     Dosage: GENERIC
     Route: 065
     Dates: end: 201607
  6. NEXIUM [Suspect]
     Active Substance: ESOMEPRAZOLE MAGNESIUM
     Indication: Dyspepsia
     Dosage: GENERIC
     Route: 065
     Dates: end: 201607
  7. NEXIUM [Suspect]
     Active Substance: ESOMEPRAZOLE MAGNESIUM
     Indication: Gastrooesophageal reflux disease
     Dosage: 40.0MG UNKNOWN
     Route: 048
     Dates: start: 2005, end: 2010
  8. NEXIUM [Suspect]
     Active Substance: ESOMEPRAZOLE MAGNESIUM
     Indication: Dyspepsia
     Dosage: 40.0MG UNKNOWN
     Route: 048
     Dates: start: 2005, end: 2010
  9. NEXIUM 24HR [Suspect]
     Active Substance: ESOMEPRAZOLE MAGNESIUM
     Indication: Gastrooesophageal reflux disease
     Route: 048
  10. PRILOSEC [Suspect]
     Active Substance: OMEPRAZOLE MAGNESIUM
     Indication: Gastrooesophageal reflux disease
     Route: 048
     Dates: start: 199703, end: 201701
  11. PRILOSEC [Suspect]
     Active Substance: OMEPRAZOLE MAGNESIUM
     Indication: Dyspepsia
     Route: 048
     Dates: start: 199703, end: 201701
  12. PRILOSEC [Suspect]
     Active Substance: OMEPRAZOLE MAGNESIUM
     Indication: Gastrooesophageal reflux disease
     Route: 048
     Dates: start: 1997, end: 2017
  13. PRILOSEC [Suspect]
     Active Substance: OMEPRAZOLE MAGNESIUM
     Indication: Dyspepsia
     Route: 048
     Dates: start: 1997, end: 2017
  14. PRILOSEC [Suspect]
     Active Substance: OMEPRAZOLE MAGNESIUM
     Indication: Gastrooesophageal reflux disease
     Dosage: GENERIC
     Route: 065
     Dates: end: 2016
  15. PRILOSEC [Suspect]
     Active Substance: OMEPRAZOLE MAGNESIUM
     Indication: Dyspepsia
     Dosage: GENERIC
     Route: 065
     Dates: end: 2016
  16. PRILOSEC [Suspect]
     Active Substance: OMEPRAZOLE MAGNESIUM
     Indication: Gastrooesophageal reflux disease
     Dosage: GENERIC40.0MG UNKNOWN
     Route: 065
     Dates: start: 2010, end: 2016
  17. PRILOSEC [Suspect]
     Active Substance: OMEPRAZOLE MAGNESIUM
     Indication: Dyspepsia
     Dosage: GENERIC40.0MG UNKNOWN
     Route: 065
     Dates: start: 2010, end: 2016
  18. PRILOSEC [Suspect]
     Active Substance: OMEPRAZOLE MAGNESIUM
     Indication: Gastrooesophageal reflux disease
     Dosage: 40.0MG UNKNOWN
     Route: 048
  19. PRILOSEC [Suspect]
     Active Substance: OMEPRAZOLE MAGNESIUM
     Indication: Dyspepsia
     Dosage: 40.0MG UNKNOWN
     Route: 048
  20. PRILOSEC OTC [Suspect]
     Active Substance: OMEPRAZOLE MAGNESIUM
     Indication: Gastrooesophageal reflux disease
     Route: 048
     Dates: start: 199703, end: 201701
  21. PRILOSEC OTC [Suspect]
     Active Substance: OMEPRAZOLE MAGNESIUM
     Indication: Gastrooesophageal reflux disease
     Route: 048
     Dates: start: 2003, end: 2017
  22. PREVACID [Suspect]
     Active Substance: LANSOPRAZOLE
     Indication: Gastrooesophageal reflux disease
     Route: 065
     Dates: start: 199703, end: 201701
  23. PREVACID [Suspect]
     Active Substance: LANSOPRAZOLE
     Indication: Gastrooesophageal reflux disease
     Route: 065
     Dates: start: 1997, end: 2017
  24. PREVACID [Suspect]
     Active Substance: LANSOPRAZOLE
     Indication: Gastrooesophageal reflux disease
     Dosage: GENERIC
     Route: 065
     Dates: start: 2010
  25. PREVACID 24 HR [Suspect]
     Active Substance: LANSOPRAZOLE
     Indication: Gastrooesophageal reflux disease
     Route: 065
     Dates: start: 2009, end: 2017
  26. ULORIC [Concomitant]
     Active Substance: FEBUXOSTAT
     Indication: Gout
     Dates: start: 201310, end: 201406
  27. LISINOPRIL [Concomitant]
     Active Substance: LISINOPRIL
     Indication: Hypertension
     Dates: start: 201001, end: 201010
  28. CELEBREX [Concomitant]
     Active Substance: CELECOXIB
     Indication: Pain
     Dates: start: 201101, end: 201110
  29. AVAPRO [Concomitant]
     Active Substance: IRBESARTAN
     Indication: Hypertension
     Dates: start: 201101, end: 201110
  30. TYLENOL [Concomitant]
     Active Substance: ACETAMINOPHEN
     Indication: Pain
  31. PEPCID [Concomitant]
     Active Substance: FAMOTIDINE
     Dates: start: 2010
  32. AMLODIPINE [Concomitant]
     Active Substance: AMLODIPINE BESYLATE
  33. COLCRYS [Concomitant]
     Active Substance: COLCHICINE
  34. PREDNISONE [Concomitant]
     Active Substance: PREDNISONE
  35. LASIX [Concomitant]
     Active Substance: FUROSEMIDE
  36. METOPROLOL TARTRATE [Concomitant]
     Active Substance: METOPROLOL TARTRATE
  37. LOSARTAN POTASSIUM [Concomitant]
     Active Substance: LOSARTAN POTASSIUM
  38. FLUTICASONE PROPIONATE [Concomitant]
     Active Substance: FLUTICASONE PROPIONATE
  39. LOSARTAN [Concomitant]
     Active Substance: LOSARTAN
  40. PROBIOTICS NOS [Concomitant]
     Active Substance: PROBIOTICS NOS
  41. DIAZEPAM [Concomitant]
     Active Substance: DIAZEPAM
  42. MECOBALAMIN/BENFOTIAMINE [Concomitant]
  43. GLIMEPIRIDE [Concomitant]
     Active Substance: GLIMEPIRIDE
  44. OMEGA 3 [Concomitant]
     Active Substance: CAPSAICIN
  45. BERBERINE [Concomitant]
     Active Substance: BERBERINE
  46. OXYBUTYNIN [Concomitant]
     Active Substance: OXYBUTYNIN
  47. VITAMIN B COMPLEX [Concomitant]
     Active Substance: CYANOCOBALAMIN\DEXPANTHENOL\NIACINAMIDE\PYRIDOXINE HYDROCHLORIDE\RIBOFLAVIN 5^-PHOSPHATE SODIUM\THIA
  48. MINOCYCLINE [Concomitant]
     Active Substance: MINOCYCLINE HYDROCHLORIDE
  49. PROAIR HFA [Concomitant]
     Active Substance: ALBUTEROL SULFATE
  50. MYLANTA [Concomitant]
     Active Substance: ALUMINUM HYDROXIDE\DIMETHICONE\MAGNESIUM HYDROXIDE
  51. FERROUS GLUCONATE [Concomitant]
     Active Substance: FERROUS GLUCONATE
  52. DILTIAZEM [Concomitant]
     Active Substance: DILTIAZEM
  53. CARVEDILOL [Concomitant]
     Active Substance: CARVEDILOL
  54. DIOVAN [Concomitant]
     Active Substance: VALSARTAN
  55. ASTAXANTHIN [Concomitant]
     Active Substance: ASTAXANTHIN
  56. MAGNESIUM [Concomitant]
     Active Substance: MAGNESIUM
  57. DIETARY SUPPLEMENT [Concomitant]
     Active Substance: DIETARY SUPPLEMENT
  58. ALPHA LIPOIC ACID [Concomitant]
     Active Substance: .ALPHA.-LIPOIC ACID

REACTIONS (3)
  - Chronic kidney disease [Not Recovered/Not Resolved]
  - End stage renal disease [Unknown]
  - Gastrooesophageal reflux disease [Not Recovered/Not Resolved]

NARRATIVE: CASE EVENT DATE: 20150130
